FAERS Safety Report 22033656 (Version 1)
Quarter: 2023Q1

REPORT INFORMATION
  Report Type: Spontaneous
  Country: US (occurrence: None)
  Receive Date: 20230222
  Receipt Date: 20230222
  Transmission Date: 20230417
  Serious: Yes (Other)
  Sender: FDA-Public Use
  Company Number: None

PATIENT
  Age: 39 Year
  Sex: Male
  Weight: 83.25 kg

DRUGS (2)
  1. FINASTERIDE [Suspect]
     Active Substance: FINASTERIDE
     Indication: Prostatic disorder
     Dosage: OTHER QUANTITY : .25 CAPSULE(S);?FREQUENCY : DAILY;?
     Route: 048
  2. FINASTERIDE [Suspect]
     Active Substance: FINASTERIDE
     Indication: Androgenetic alopecia

REACTIONS (4)
  - Alopecia [None]
  - Product physical issue [None]
  - Product quality issue [None]
  - Prostatomegaly [None]

NARRATIVE: CASE EVENT DATE: 20221101
